FAERS Safety Report 10433107 (Version 1)
Quarter: 2014Q3

REPORT INFORMATION
  Report Type: Spontaneous
  Country: US (occurrence: US)
  Receive Date: 20140905
  Receipt Date: 20140905
  Transmission Date: 20150326
  Serious: No
  Sender: FDA-Public Use
  Company Number: US-009507513-1408USA009851

PATIENT
  Age: 21 Year
  Sex: Female
  Weight: 66.21 kg

DRUGS (3)
  1. ACYCLOVIR. [Concomitant]
     Active Substance: ACYCLOVIR
  2. CELEXA [Concomitant]
     Active Substance: CITALOPRAM HYDROBROMIDE
     Dosage: UNK
  3. NEXPLANON [Suspect]
     Active Substance: ETONOGESTREL
     Dosage: UNK. LEFT ARM
     Route: 059
     Dates: start: 20140613

REACTIONS (4)
  - Metrorrhagia [Unknown]
  - Device deployment issue [Not Recovered/Not Resolved]
  - Hypomenorrhoea [Unknown]
  - Implant site pain [Not Recovered/Not Resolved]

NARRATIVE: CASE EVENT DATE: 2014
